FAERS Safety Report 19503929 (Version 1)
Quarter: 2021Q3

REPORT INFORMATION
  Report Type: Report from Study
  Country: US (occurrence: US)
  Receive Date: 20210707
  Receipt Date: 20210707
  Transmission Date: 20211014
  Serious: No
  Sender: FDA-Public Use
  Company Number: US-SUNOVION-2021SUN002211

PATIENT
  Age: 69 Year
  Sex: Female

DRUGS (1)
  1. KYNMOBI [Suspect]
     Active Substance: APOMORPHINE HYDROCHLORIDE
     Dosage: 20 MG
     Route: 048
     Dates: start: 20210528, end: 20210528

REACTIONS (2)
  - Stomatitis [Unknown]
  - Mouth swelling [Unknown]

NARRATIVE: CASE EVENT DATE: 20210530
